FAERS Safety Report 9725515 (Version 3)
Quarter: 2014Q3

REPORT INFORMATION
  Report Type: Report from Study
  Country: BR (occurrence: BR)
  Receive Date: 20131203
  Receipt Date: 20140918
  Transmission Date: 20150326
  Serious: Yes (Other)
  Sender: FDA-Public Use
  Company Number: PHHY2013BR138545

PATIENT
  Sex: Female
  Weight: 85 kg

DRUGS (7)
  1. ENALAPRIL [Suspect]
     Active Substance: ENALAPRIL
     Indication: HYPERTENSION
     Dosage: 1 DF, BID (IN THE MORNING AND AT NIGHT)
  2. ANADOR                                  /BRA/ [Concomitant]
     Indication: PAIN
     Dosage: 45 DRP, UNK
  3. MODURETIC 5-50 [Suspect]
     Active Substance: AMILORIDE HYDROCHLORIDE\HYDROCHLOROTHIAZIDE
     Indication: HYPERTENSION
     Dosage: 1 DF, DAILY
  4. ANTIHYPERTENSIVES [Concomitant]
     Active Substance: UNSPECIFIED INGREDIENT
     Indication: HYPERTENSION
     Dosage: UNK
  5. SANDOSTATIN LAR DEPOT [Suspect]
     Active Substance: OCTREOTIDE ACETATE
     Indication: HEPATIC CANCER
  6. SANDOSTATIN LAR DEPOT [Suspect]
     Active Substance: OCTREOTIDE ACETATE
     Indication: OFF LABEL USE
  7. SANDOSTATIN LAR DEPOT [Suspect]
     Active Substance: OCTREOTIDE ACETATE
     Indication: METASTASES TO LIVER
     Dosage: 20 MG, EVERY 30 DAYS
     Dates: start: 200907

REACTIONS (13)
  - Renal neoplasm [Unknown]
  - Haematuria [Recovered/Resolved]
  - Abdominal discomfort [Unknown]
  - Kidney enlargement [Unknown]
  - Metastatic neoplasm [Unknown]
  - Diabetes mellitus [Recovering/Resolving]
  - Liver injury [Unknown]
  - Malaise [Unknown]
  - Renal disorder [Unknown]
  - Pruritus [Recovering/Resolving]
  - Renal impairment [Unknown]
  - Metastases to liver [Unknown]
  - Pain [Recovered/Resolved]
